FAERS Safety Report 4364226-8 (Version None)
Quarter: 2004Q2

REPORT INFORMATION
  Report Type: 
  Country: None (occurrence: None)
  Receive Date: 20040517
  Receipt Date: 20040304
  Transmission Date: 20050107
  Serious: No
  Sender: FDA-Public Use
  Company Number: S04-USA-01104-01

PATIENT
  Age: 40 Year
  Sex: Male

DRUGS (7)
  1. NAMENDA [Suspect]
     Indication: MEMORY IMPAIRMENT
     Dosage: 5 MG QD PO
     Route: 048
     Dates: start: 20040304
  2. LASIX [Concomitant]
  3. CAPTOPRIL [Concomitant]
  4. GLUCOPHAGE [Concomitant]
  5. KLOR-CON [Concomitant]
  6. NITROGLYCERIN [Concomitant]
  7. MULTIVITAMIN [Concomitant]

REACTIONS (1)
  - PARAESTHESIA [None]
